FAERS Safety Report 20085421 (Version 1)
Quarter: 2021Q4

REPORT INFORMATION
  Report Type: Spontaneous
  Country: US (occurrence: None)
  Receive Date: 20211117
  Receipt Date: 20211117
  Transmission Date: 20220303
  Serious: Yes (Hospitalization)
  Sender: FDA-Public Use
  Company Number: None

PATIENT
  Age: 79 Year
  Sex: Male
  Weight: 91.35 kg

DRUGS (1)
  1. BAMLANIVIMAB\ETESEVIMAB [Suspect]
     Active Substance: BAMLANIVIMAB\ETESEVIMAB
     Indication: COVID-19
     Dosage: OTHER FREQUENCY : ONCE;?
     Route: 041
     Dates: start: 20211027, end: 20211027

REACTIONS (8)
  - Dyspnoea [None]
  - Pyrexia [None]
  - Malaise [None]
  - Fatigue [None]
  - Acute respiratory failure [None]
  - Hyperglycaemia [None]
  - Glycosylated haemoglobin increased [None]
  - COVID-19 [None]

NARRATIVE: CASE EVENT DATE: 20211111
